FAERS Safety Report 8186687-9 (Version None)
Quarter: 2012Q1

REPORT INFORMATION
  Report Type: 
  Country: None (occurrence: None)
  Receive Date: 20120306
  Receipt Date: 20120305
  Transmission Date: 20120608
  Serious: No
  Sender: FDA-Public Use
  Company Number: US-PFIZER INC-2012058819

PATIENT
  Sex: Male

DRUGS (4)
  1. RISPERIDONE [Concomitant]
     Indication: DEPRESSION
     Dosage: 1 MG, DAILY
     Route: 048
  2. SIMVASTATIN [Concomitant]
     Indication: BLOOD CHOLESTEROL INCREASED
     Dosage: 20 MG, DAILY
  3. CHANTIX [Suspect]
     Indication: SMOKING CESSATION THERAPY
     Dosage: 0.5 MG, DAILY
     Route: 048
  4. LISINOPRIL [Concomitant]
     Indication: HYPERTENSION
     Dosage: 10 MG, DAILY

REACTIONS (4)
  - ABNORMAL DREAMS [None]
  - FEELING ABNORMAL [None]
  - HEAD DISCOMFORT [None]
  - DRUG INEFFECTIVE [None]
